FAERS Safety Report 15539318 (Version 5)
Quarter: 2018Q4

REPORT INFORMATION
  Report Type: Spontaneous
  Country: US (occurrence: US)
  Receive Date: 20181022
  Receipt Date: 20181102
  Transmission Date: 20190205
  Serious: Yes (Death, Hospitalization, Other)
  Sender: FDA-Public Use
  Company Number: US-AMGEN-00080116

PATIENT
  Age: 45 Year
  Sex: Male

DRUGS (1)
  1. ENBREL [Suspect]
     Active Substance: ETANERCEPT
     Indication: PSORIATIC ARTHROPATHY
     Dosage: 25 MG, 2 TIMES/WK
     Route: 058

REACTIONS (9)
  - Pseudomonas infection [Fatal]
  - Bacterascites [Unknown]
  - Cellulitis enterococcal [Unknown]
  - Stenotrophomonas infection [Unknown]
  - Respiratory arrest [Fatal]
  - Hypotension [Fatal]
  - Rash erythematous [Unknown]
  - Cystitis [Unknown]
  - Bacterial infection [Unknown]
